FAERS Safety Report 16813083 (Version 1)
Quarter: 2019Q3

REPORT INFORMATION
  Report Type: Spontaneous
  Country: US (occurrence: US)
  Receive Date: 20190916
  Receipt Date: 20190916
  Transmission Date: 20191005
  Serious: No
  Sender: FDA-Public Use
  Company Number: US-LEADIANT BIOSCIENCES INC-2019STPI000019

PATIENT
  Age: 41 Year

DRUGS (2)
  1. MATULANE [Suspect]
     Active Substance: PROCARBAZINE HYDROCHLORIDE
     Indication: BRAIN NEOPLASM MALIGNANT
     Dosage: 150 MG PO QD ON DAYS 8 -14 AND 100MG PO QD ON DAYS 15 - 21
     Route: 048
     Dates: start: 20181204
  2. MULTIVITAMIN (16) [Concomitant]
     Active Substance: VITAMINS

REACTIONS (2)
  - Nausea [Not Recovered/Not Resolved]
  - Vomiting [Unknown]

NARRATIVE: CASE EVENT DATE: 201812
